FAERS Safety Report 6112040-5 (Version None)
Quarter: 2009Q1

REPORT INFORMATION
  Report Type: 
  Country: None (occurrence: None)
  Receive Date: 20090311
  Receipt Date: 20090227
  Transmission Date: 20090719
  Serious: Yes (Other)
  Sender: FDA-Public Use
  Company Number: US-PFIZER INC-2009179546

PATIENT
  Sex: Female
  Weight: 63.502 kg

DRUGS (5)
  1. ZOLOFT [Suspect]
     Indication: DEPRESSION
     Dosage: UNK
  2. ZOLOFT [Suspect]
     Indication: ANXIETY
  3. DIAZEPAM [Concomitant]
     Dosage: UNK
  4. BUSPAR [Concomitant]
     Dosage: UNK
  5. PROTONIX [Concomitant]
     Dosage: UNK

REACTIONS (1)
  - COELIAC DISEASE [None]
